FAERS Safety Report 9459609 (Version 1)
Quarter: 2013Q3

REPORT INFORMATION
  Report Type: Spontaneous
  Country: US (occurrence: US)
  Receive Date: 20130815
  Receipt Date: 20130815
  Transmission Date: 20140515
  Serious: No
  Sender: FDA-Public Use
  Company Number: US-COVIDIEN/TYCO HEALTHCARE/MALLINCKRODT-T201303984

PATIENT
  Age: 46 Year
  Sex: Female
  Weight: 52.61 kg

DRUGS (3)
  1. FENTANYL TRANSDERMAL SYSTEM [Suspect]
     Indication: PAIN
     Dosage: 25 UG/HR, EVERY 72 HOURS
     Route: 062
     Dates: start: 200903
  2. DILAUDID [Suspect]
     Indication: PAIN
     Dosage: 4 MG, PRN 6 TIMES DAILY
     Route: 048
     Dates: start: 200903
  3. ULTRAM [Concomitant]
     Indication: PAIN
     Dosage: 50 MG, PRN 4 TIMES DAILY
     Route: 048
     Dates: start: 20130723

REACTIONS (6)
  - Road traffic accident [Recovered/Resolved]
  - Tooth fracture [Not Recovered/Not Resolved]
  - Dental caries [Not Recovered/Not Resolved]
  - Weight decreased [Not Recovered/Not Resolved]
  - Urine odour abnormal [Not Recovered/Not Resolved]
  - Skin odour abnormal [Not Recovered/Not Resolved]
